FAERS Safety Report 13344642 (Version 1)
Quarter: 2017Q1

REPORT INFORMATION
  Report Type: Spontaneous
  Country: CH (occurrence: CH)
  Receive Date: 20170317
  Receipt Date: 20170317
  Transmission Date: 20170428
  Serious: Yes (Other)
  Sender: FDA-Public Use
  Company Number: CH-SUN PHARMACEUTICAL INDUSTRIES LTD-2017RR-135923

PATIENT
  Age: 60 Year

DRUGS (5)
  1. FLUOROURACIL. [Suspect]
     Active Substance: FLUOROURACIL
     Indication: SKIN CANCER
     Dosage: 500 MG, TOTAL, 1 CYCLE
     Route: 065
  2. BLEOMYCIN [Suspect]
     Active Substance: BLEOMYCIN SULFATE
     Indication: SKIN CANCER
     Dosage: 15 IU, TOTAL, 1 CYCLE
     Route: 065
  3. METHOTREXATE. [Suspect]
     Active Substance: METHOTREXATE
     Indication: SKIN CANCER
     Dosage: 40 MG, TOTAL, 1 CYCLE
     Route: 065
  4. CALCIUM FOLINAT [Suspect]
     Active Substance: LEUCOVORIN CALCIUM
     Indication: SKIN CANCER
     Dosage: 30 MG, QID, NINE TIMES, STARTED 12 H AFTER THE ADMINISTRATION OF METHOTREXATE, 1 CYCLE
     Route: 065
  5. CARBOPLATIN. [Suspect]
     Active Substance: CARBOPLATIN
     Indication: SKIN CANCER
     Dosage: 1 CYCLE
     Route: 065

REACTIONS (2)
  - Disease progression [Unknown]
  - Drug ineffective [Unknown]
